FAERS Safety Report 25607972 (Version 6)
Quarter: 2025Q4

REPORT INFORMATION
  Report Type: Spontaneous
  Country: EU (occurrence: EU)
  Receive Date: 20250725
  Receipt Date: 20251127
  Transmission Date: 20260118
  Serious: Yes (Hospitalization)
  Sender: ELI LILLY AND COMPANY
  Company Number: EU-ELI_LILLY_AND_COMPANY-RO202507022923

PATIENT
  Age: 57 Year
  Sex: Male

DRUGS (33)
  1. PEMETREXED [Suspect]
     Active Substance: PEMETREXED
     Indication: Non-small cell lung cancer
     Dosage: 891 MG/M2, CYCLICAL (EVERY 3 WEEKS)
     Route: 042
     Dates: start: 20250529
  2. PEMETREXED [Suspect]
     Active Substance: PEMETREXED
     Dosage: 445 MG/M2, CYCLICAL (EVERY 3 WEEKS)
     Route: 042
     Dates: start: 20250701
  3. CARBOPLATIN [Suspect]
     Active Substance: CARBOPLATIN
     Indication: Non-small cell lung cancer
     Dosage: 684 MG, CYCLICAL
     Route: 042
     Dates: start: 20250529
  4. CARBOPLATIN [Suspect]
     Active Substance: CARBOPLATIN
     Dosage: 303 MG, CYCLICAL
     Route: 042
     Dates: start: 20250701
  5. PEMBROLIZUMAB [Suspect]
     Active Substance: PEMBROLIZUMAB
     Indication: Non-small cell lung cancer
     Dosage: 200 MG, CYCLICAL
     Route: 042
     Dates: start: 20250529, end: 20250529
  6. PEMBROLIZUMAB [Suspect]
     Active Substance: PEMBROLIZUMAB
     Dosage: 200 MG, CYCLICAL
     Route: 042
     Dates: start: 20250701, end: 20250701
  7. FOLIC ACID [Concomitant]
     Active Substance: FOLIC ACID
     Indication: Prophylaxis
     Dosage: 5 MG, DAILY
     Route: 048
     Dates: start: 20250529
  8. ACETAZOLAMIDE [Concomitant]
     Active Substance: ACETAZOLAMIDE
     Indication: Prophylaxis
     Dosage: UNK
     Dates: start: 20250327
  9. VITAMIN B6 [Concomitant]
     Active Substance: PYRIDOXINE HYDROCHLORIDE
     Indication: Prophylaxis
     Dosage: UNK, UNKNOWN
     Route: 065
     Dates: start: 20250708, end: 20250708
  10. VITAMIN B6 [Concomitant]
     Active Substance: PYRIDOXINE HYDROCHLORIDE
     Dosage: UNK, UNKNOWN
     Route: 065
     Dates: start: 20250710, end: 20250710
  11. VITAMIN B6 [Concomitant]
     Active Substance: PYRIDOXINE HYDROCHLORIDE
     Dosage: UNK
     Route: 065
     Dates: start: 20250714, end: 20250714
  12. VITAMIN B6 [Concomitant]
     Active Substance: PYRIDOXINE HYDROCHLORIDE
     Dosage: UNK
     Route: 065
     Dates: start: 20250724, end: 20250724
  13. VITAMIN B6 [Concomitant]
     Active Substance: PYRIDOXINE HYDROCHLORIDE
     Dosage: UNK
     Route: 065
     Dates: start: 20250730, end: 20250730
  14. VITAMIN B1 [Concomitant]
     Active Substance: THIAMINE HYDROCHLORIDE
     Indication: Prophylaxis
     Dosage: UNK, UNKNOWN
     Route: 065
     Dates: start: 20250702, end: 20250702
  15. VITAMIN B1 [Concomitant]
     Active Substance: THIAMINE HYDROCHLORIDE
     Dosage: UNK, UNKNOWN
     Route: 065
     Dates: start: 20250708, end: 20250708
  16. VITAMIN B1 [Concomitant]
     Active Substance: THIAMINE HYDROCHLORIDE
     Dosage: UNK, UNKNOWN
     Route: 065
     Dates: start: 20250710, end: 20250710
  17. VITAMIN B1 [Concomitant]
     Active Substance: THIAMINE HYDROCHLORIDE
     Dosage: UNK
     Dates: start: 20250714, end: 20250714
  18. VITAMIN B1 [Concomitant]
     Active Substance: THIAMINE HYDROCHLORIDE
     Dosage: UNK, UNKNOWN
     Route: 065
     Dates: start: 20250730, end: 20250730
  19. VITAMIN C [Concomitant]
     Active Substance: ASCORBIC ACID
     Indication: Prophylaxis
     Dosage: UNK, UNKNOWN
     Route: 065
     Dates: start: 20250708, end: 20250708
  20. VITAMIN C [Concomitant]
     Active Substance: ASCORBIC ACID
     Dosage: UNK, UNKNOWN
     Route: 065
     Dates: start: 20250710, end: 20250710
  21. VITAMIN C [Concomitant]
     Active Substance: ASCORBIC ACID
     Dosage: UNK, UNKNOWN
     Route: 065
     Dates: start: 20250714, end: 20250714
  22. VITAMIN C [Concomitant]
     Active Substance: ASCORBIC ACID
     Dosage: UNK, UNKNOWN
     Route: 065
     Dates: start: 20250724, end: 20250724
  23. VITAMIN C [Concomitant]
     Active Substance: ASCORBIC ACID
     Dosage: UNK
     Route: 065
     Dates: start: 20250730, end: 20250730
  24. PYRIDOXINE HYDROCHLORIDE\SODIUM ASPARTATE [Concomitant]
     Active Substance: PYRIDOXINE HYDROCHLORIDE\SODIUM ASPARTATE
     Indication: Prophylaxis
     Dosage: UNK, UNKNOWN
     Route: 065
     Dates: start: 20250708, end: 20250708
  25. PYRIDOXINE HYDROCHLORIDE\SODIUM ASPARTATE [Concomitant]
     Active Substance: PYRIDOXINE HYDROCHLORIDE\SODIUM ASPARTATE
     Dosage: UNK, UNKNOWN
     Route: 065
     Dates: start: 20250710, end: 20250710
  26. PYRIDOXINE HYDROCHLORIDE\SODIUM ASPARTATE [Concomitant]
     Active Substance: PYRIDOXINE HYDROCHLORIDE\SODIUM ASPARTATE
     Dosage: UNK, UNKNOWN
     Route: 065
     Dates: start: 20250714, end: 20250714
  27. PYRIDOXINE HYDROCHLORIDE\SODIUM ASPARTATE [Concomitant]
     Active Substance: PYRIDOXINE HYDROCHLORIDE\SODIUM ASPARTATE
     Dosage: UNK, UNKNOWN
     Route: 065
     Dates: start: 20250724, end: 20250724
  28. PYRIDOXINE HYDROCHLORIDE\SODIUM ASPARTATE [Concomitant]
     Active Substance: PYRIDOXINE HYDROCHLORIDE\SODIUM ASPARTATE
     Dosage: UNK, UNKNOWN
     Route: 065
     Dates: start: 20250730, end: 20250730
  29. ERYTHROPOIETIN [Concomitant]
     Active Substance: ERYTHROPOIETIN
     Indication: Prophylaxis
     Dosage: UNK, UNKNOWN
     Route: 065
     Dates: start: 20250710, end: 20250710
  30. ERYTHROPOIETIN [Concomitant]
     Active Substance: ERYTHROPOIETIN
     Dosage: UNK, UNKNOWN
     Route: 065
     Dates: start: 20250714, end: 20250714
  31. ERYTHROPOIETIN [Concomitant]
     Active Substance: ERYTHROPOIETIN
     Dosage: UNK, UNKNOWN
     Route: 065
     Dates: start: 20250724, end: 20250724
  32. METOCLOPRAMIDE [Concomitant]
     Active Substance: METOCLOPRAMIDE
     Indication: Prophylaxis
     Dosage: UNK, UNKNOWN
     Route: 065
     Dates: start: 20250724, end: 20250724
  33. METOCLOPRAMIDE [Concomitant]
     Active Substance: METOCLOPRAMIDE
     Dosage: UNK, UNKNOWN
     Route: 065
     Dates: start: 20250730, end: 20250730

REACTIONS (9)
  - Hypokalaemia [Recovered/Resolved]
  - Neutropenia [Recovered/Resolved]
  - Anaemia [Recovered/Resolved]
  - Stomatitis [Recovered/Resolved]
  - Thrombocytopenia [Recovered/Resolved]
  - Anaemia [Recovered/Resolved]
  - Hypomagnesaemia [Recovered/Resolved]
  - Hypocalcaemia [Recovered/Resolved]
  - Hyponatraemia [Recovered/Resolved]

NARRATIVE: CASE EVENT DATE: 20250613
